FAERS Safety Report 18916410 (Version 1)
Quarter: 2021Q1

REPORT INFORMATION
  Report Type: Spontaneous
  Country: None (occurrence: US)
  Receive Date: 20210219
  Receipt Date: 20210219
  Transmission Date: 20210420
  Serious: Yes (Hospitalization)
  Sender: FDA-Public Use
  Company Number: US-HYGENIC CORPORATION-2107041

PATIENT
  Sex: Female

DRUGS (2)
  1. BIOFREEZE [Suspect]
     Active Substance: MENTHOL
     Indication: PAIN
     Route: 061
  2. COLD PACK [Concomitant]

REACTIONS (1)
  - Chemical burn [Unknown]
